FAERS Safety Report 9820955 (Version 1)
Quarter: 2013Q4

REPORT INFORMATION
  Report Type: Spontaneous
  Country: US (occurrence: None)
  Receive Date: 20131028
  Receipt Date: 20131028
  Transmission Date: 20140711
  Serious: Yes (Other)
  Sender: FDA-Public Use
  Company Number: 2013US001579

PATIENT
  Age: 66 Year
  Sex: Male
  Weight: 75 kg

DRUGS (3)
  1. ICLUSIG [Suspect]
     Indication: CHRONIC MYELOID LEUKAEMIA
     Route: 048
     Dates: start: 20130501, end: 20130508
  2. OXYCODONE (OXYCODONE) [Concomitant]
  3. VITAMIN B 12 (COBAMAMIDE) [Concomitant]

REACTIONS (6)
  - Hyperhidrosis [None]
  - Ear pain [None]
  - Pyrexia [None]
  - Chills [None]
  - Headache [None]
  - Decreased appetite [None]
